FAERS Safety Report 5263374-8 (Version None)
Quarter: 2007Q1

REPORT INFORMATION
  Report Type: 
  Country: None (occurrence: None)
  Receive Date: 20070313
  Receipt Date: 20070307
  Transmission Date: 20070707
  Serious: No
  Sender: FDA-Public Use
  Company Number: KR-ELI_LILLY_AND_COMPANY-KR200612003778

PATIENT
  Age: 8 Year
  Sex: Male

DRUGS (3)
  1. ZYPREXA [Suspect]
     Indication: AUTISM
     Dosage: 5 MG, EACH EVENING
     Route: 048
     Dates: start: 20060901, end: 20061001
  2. ZYPREXA [Suspect]
     Dosage: 5 MG, UNKNOWN
     Dates: start: 20061201, end: 20070201
  3. METHYLPHENIDATE HCL [Concomitant]
     Indication: PSYCHOMOTOR HYPERACTIVITY
     Dosage: UNK UNK, EACH MORNING
     Route: 048
     Dates: end: 20061201

REACTIONS (2)
  - EPISTAXIS [None]
  - INTENTIONAL DRUG MISUSE [None]
